FAERS Safety Report 19373078 (Version 2)
Quarter: 2021Q2

REPORT INFORMATION
  Report Type: Spontaneous
  Country: GR (occurrence: GR)
  Receive Date: 20210604
  Receipt Date: 20210611
  Transmission Date: 20210717
  Serious: Yes (Other)
  Sender: FDA-Public Use
  Company Number: GR-SUN PHARMACEUTICAL INDUSTRIES LTD-2021R1-298956

PATIENT
  Age: 50 Year
  Sex: Male

DRUGS (6)
  1. URSODEOXYCHOLIC ACID [Suspect]
     Active Substance: URSODIOL
     Indication: TYPE IV HYPERSENSITIVITY REACTION
     Route: 048
  2. COLESTYRAMINE [Suspect]
     Active Substance: CHOLESTYRAMINE
     Indication: TYPE IV HYPERSENSITIVITY REACTION
     Dosage: UNK
     Route: 065
  3. URSODEOXYCHOLIC ACID [Suspect]
     Active Substance: URSODIOL
     Indication: RASH PRURITIC
  4. LEVOCETIRIZINE [Suspect]
     Active Substance: LEVOCETIRIZINE
     Indication: TYPE IV HYPERSENSITIVITY REACTION
     Dosage: UNK
     Route: 065
  5. COLESTYRAMINE [Suspect]
     Active Substance: CHOLESTYRAMINE
     Indication: RASH PRURITIC
  6. LEVOCETIRIZINE [Suspect]
     Active Substance: LEVOCETIRIZINE
     Indication: RASH PRURITIC

REACTIONS (1)
  - Drug ineffective [Unknown]
